FAERS Safety Report 7130438-3 (Version None)
Quarter: 2010Q4

REPORT INFORMATION
  Report Type: 
  Country: None (occurrence: None)
  Receive Date: 20101201
  Receipt Date: 20101116
  Transmission Date: 20110411
  Serious: Yes (Other)
  Sender: FDA-Public Use
  Company Number: GB-AMGEN-FRASP2010004885

PATIENT

DRUGS (1)
  1. ARANESP [Suspect]
     Indication: RENAL FAILURE CHRONIC

REACTIONS (3)
  - CARDIOVASCULAR DISORDER [None]
  - HYPERPARATHYROIDISM SECONDARY [None]
  - TYPE 2 DIABETES MELLITUS [None]
